FAERS Safety Report 8525496-5 (Version None)
Quarter: 2012Q3

REPORT INFORMATION
  Report Type: 
  Country: None (occurrence: None)
  Receive Date: 20120720
  Receipt Date: 20120703
  Transmission Date: 20120928
  Serious: No
  Sender: FDA-Public Use
  Company Number: CA-JNJFOC-20120702270

PATIENT
  Sex: Female
  Weight: 71.4 kg

DRUGS (2)
  1. REMICADE [Suspect]
     Indication: CROHN'S DISEASE
     Route: 042
     Dates: start: 20120301
  2. REMICADE [Suspect]
     Route: 042

REACTIONS (1)
  - URINARY TRACT INFECTION [None]
